FAERS Safety Report 15357747 (Version 11)
Quarter: 2020Q1

REPORT INFORMATION
  Report Type: Spontaneous
  Country: US (occurrence: US)
  Receive Date: 20180906
  Receipt Date: 20200326
  Transmission Date: 20200409
  Serious: Yes (Hospitalization, Other)
  Sender: FDA-Public Use
  Company Number: US-ACTELION-A-NJ2018-178533

PATIENT
  Age: 40 Year
  Sex: Female
  Weight: 49.89 kg

DRUGS (4)
  1. VENTAVIS [Suspect]
     Active Substance: ILOPROST
     Indication: PULMONARY HYPERTENSION
     Dosage: 5.0 MCG, 6-9 X^S/DAY
     Route: 055
     Dates: end: 20200319
  2. ADEMPAS [Concomitant]
     Active Substance: RIOCIGUAT
     Dosage: UNK
  3. TRACLEER [Suspect]
     Active Substance: BOSENTAN
     Indication: PULMONARY HYPERTENSION
     Dosage: 125 MG, BID
     Route: 048
  4. VENTAVIS [Suspect]
     Active Substance: ILOPROST
     Dosage: 5.0 MCG, 3 X^S/DAY
     Route: 055

REACTIONS (25)
  - Anger [Unknown]
  - Dyspnoea [Unknown]
  - Hypersomnia [Unknown]
  - Kidney infection [Unknown]
  - Pulmonary hypertension [Not Recovered/Not Resolved]
  - Dementia [Unknown]
  - Menstrual disorder [Unknown]
  - Seizure [Not Recovered/Not Resolved]
  - Tremor [Not Recovered/Not Resolved]
  - Urinary tract infection [Unknown]
  - Drug ineffective [Unknown]
  - Terminal state [Unknown]
  - Fall [Not Recovered/Not Resolved]
  - Hypotension [Recovering/Resolving]
  - Malaise [Unknown]
  - Fatigue [Unknown]
  - Condition aggravated [Not Recovered/Not Resolved]
  - Disease progression [Unknown]
  - Chest pain [Unknown]
  - Cardiac failure congestive [Unknown]
  - General physical health deterioration [Unknown]
  - Palpitations [Not Recovered/Not Resolved]
  - Renal pain [Unknown]
  - Memory impairment [Unknown]
  - Dyspnoea exertional [Not Recovered/Not Resolved]

NARRATIVE: CASE EVENT DATE: 20190511
